FAERS Safety Report 9616786 (Version 2)
Quarter: 2013Q4

REPORT INFORMATION
  Report Type: Spontaneous
  Country: US (occurrence: US)
  Receive Date: 20131011
  Receipt Date: 20131022
  Transmission Date: 20140711
  Serious: Yes (Other)
  Sender: FDA-Public Use
  Company Number: US-BAXTER-2013BAX039030

PATIENT
  Sex: Female
  Weight: 52.27 kg

DRUGS (6)
  1. GAMMAGARD LIQUID [Suspect]
     Indication: IMMUNE SYSTEM DISORDER
     Route: 042
  2. GAMMAGARD LIQUID [Suspect]
     Route: 058
     Dates: end: 201309
  3. HUMIRA [Concomitant]
     Indication: ARTHRITIS
     Route: 065
  4. COUMADIN [Concomitant]
     Indication: PRODUCT USED FOR UNKNOWN INDICATION
     Route: 065
  5. CELEBREX [Concomitant]
     Indication: PRODUCT USED FOR UNKNOWN INDICATION
     Route: 065
  6. TYLENOL [Concomitant]
     Indication: PRODUCT USED FOR UNKNOWN INDICATION
     Route: 065

REACTIONS (4)
  - Visual field defect [Not Recovered/Not Resolved]
  - Visual impairment [Not Recovered/Not Resolved]
  - Visual acuity reduced [Not Recovered/Not Resolved]
  - Eye movement disorder [Not Recovered/Not Resolved]
